FAERS Safety Report 6377845-4 (Version None)
Quarter: 2009Q3

REPORT INFORMATION
  Report Type: 
  Country: None (occurrence: None)
  Receive Date: 20090925
  Receipt Date: 20090130
  Transmission Date: 20100115
  Serious: No
  Sender: FDA-Public Use
  Company Number: US-ABBOTT-09P-163-0501189-00

PATIENT

DRUGS (2)
  1. TRICOR [Suspect]
     Indication: DRUG USE FOR UNKNOWN INDICATION
  2. UNKNOWN STATIN [Suspect]
     Indication: DRUG USE FOR UNKNOWN INDICATION

REACTIONS (1)
  - DRUG INEFFECTIVE [None]
